FAERS Safety Report 6098756-8 (Version None)
Quarter: 2009Q1

REPORT INFORMATION
  Report Type: 
  Country: None (occurrence: None)
  Receive Date: 20090302
  Receipt Date: 20090218
  Transmission Date: 20090719
  Serious: Yes (Other)
  Sender: FDA-Public Use
  Company Number: CH-PFIZER INC-2009171673

PATIENT

DRUGS (1)
  1. ZITHROMAX [Suspect]
     Route: 048
     Dates: start: 20081224, end: 20081227

REACTIONS (1)
  - ABORTION [None]
